FAERS Safety Report 6048875-7 (Version None)
Quarter: 2009Q1

REPORT INFORMATION
  Report Type: 
  Country: None (occurrence: None)
  Receive Date: 20090123
  Receipt Date: 20090119
  Transmission Date: 20090719
  Serious: Yes (Death, Hospitalization)
  Sender: FDA-Public Use
  Company Number: FR-ELI_LILLY_AND_COMPANY-FR200901002875

PATIENT
  Sex: Male

DRUGS (3)
  1. GEMZAR [Suspect]
     Indication: LUNG ADENOCARCINOMA
     Dosage: 2070 MG, INFUSION IN 30 MINUTES
     Route: 042
     Dates: start: 20080912
  2. CISPLATIN [Concomitant]
     Indication: LUNG ADENOCARCINOMA
     Dosage: 132 MG, INFUSION IN 2 HOURS
     Route: 042
     Dates: start: 20080912
  3. AVASTIN [Concomitant]
     Dosage: 397 MG, INFUSION IN 90 MIN
     Route: 042
     Dates: start: 20080912

REACTIONS (5)
  - ACUTE RESPIRATORY FAILURE [None]
  - ESCHERICHIA BACTERAEMIA [None]
  - MICROANGIOPATHIC HAEMOLYTIC ANAEMIA [None]
  - PERICARDIAL EFFUSION [None]
  - PULMONARY EMBOLISM [None]
